FAERS Safety Report 15885897 (Version 3)
Quarter: 2021Q3

REPORT INFORMATION
  Report Type: Report from Study
  Country: GR (occurrence: GR)
  Receive Date: 20190129
  Receipt Date: 20210803
  Transmission Date: 20211014
  Serious: Yes (Hospitalization, Other)
  Sender: FDA-Public Use
  Company Number: GR-PFIZER INC-2019034461

PATIENT
  Age: 43 Year
  Sex: Female
  Weight: 80 kg

DRUGS (16)
  1. CYTOXAN [Suspect]
     Active Substance: CYCLOPHOSPHAMIDE
     Indication: PLASMA CELL MYELOMA
     Dosage: 700 MG, UNK
     Route: 042
     Dates: start: 20170826
  2. DECADRON [Suspect]
     Active Substance: DEXAMETHASONE
     Indication: PLASMA CELL MYELOMA
     Dosage: 20 MG, UNK
     Route: 048
     Dates: start: 20170809, end: 20170826
  3. BORTEZOMIB. [Suspect]
     Active Substance: BORTEZOMIB
     Indication: PLASMA CELL MYELOMA
     Dosage: 2.5 MG
     Route: 058
     Dates: start: 20170809, end: 20170826
  4. VELCADE [Suspect]
     Active Substance: BORTEZOMIB
     Indication: PLASMA CELL MYELOMA
     Dosage: 5 MG, WEEKLY, LYOPHILIZED POWDER, INJECTION: ON DAYS 1, 4, 8 AND 11, ONE WEEK OFF, EVERY 21 DAYS
     Route: 058
     Dates: start: 20170809, end: 20170826
  5. DARZALEX [Concomitant]
     Active Substance: DARATUMUMAB
     Dosage: 1000 MG, MONTHLY
     Route: 042
     Dates: start: 20170826
  6. DARZALEX [Concomitant]
     Active Substance: DARATUMUMAB
     Dosage: 1000 MG, UNK
     Route: 042
     Dates: start: 20170809, end: 20170826
  7. HEPARIN [Concomitant]
     Active Substance: HEPARIN SODIUM
     Dosage: UNK
  8. FILGRASTIM [Concomitant]
     Active Substance: FILGRASTIM
     Dosage: UNK
  9. BORTEZOMIB. [Suspect]
     Active Substance: BORTEZOMIB
     Dosage: 2.5 MG
     Route: 058
     Dates: start: 20180125, end: 20180201
  10. VEPESID [Suspect]
     Active Substance: ETOPOSIDE
     Indication: PLASMA CELL MYELOMA
     Dosage: 70 MG, UNK
     Route: 042
     Dates: start: 20170826
  11. DOXORUBICIN HCL [Suspect]
     Active Substance: DOXORUBICIN HYDROCHLORIDE
     Indication: PLASMA CELL MYELOMA
     Dosage: 17 MG, UNK
     Route: 042
     Dates: start: 20170826
  12. EPOETIN ALFA [Concomitant]
     Active Substance: ERYTHROPOIETIN
     Dosage: UNK
  13. PLATINOL [Suspect]
     Active Substance: CISPLATIN
     Indication: PLASMA CELL MYELOMA
     Dosage: 17 MG, UNK
     Route: 042
     Dates: start: 20170826
  14. DECADRON [Suspect]
     Active Substance: DEXAMETHASONE
     Dosage: 40 MG, UNK
     Route: 048
     Dates: start: 20170826
  15. DARZALEX [Concomitant]
     Active Substance: DARATUMUMAB
     Indication: PLASMA CELL MYELOMA
     Dosage: 1000 MG, WEEKLY
     Route: 042
     Dates: start: 20170329, end: 20170621
  16. ZOLEDRONIC ACID [Concomitant]
     Active Substance: ZOLEDRONIC ACID
     Dosage: UNK

REACTIONS (1)
  - Febrile neutropenia [Recovered/Resolved]

NARRATIVE: CASE EVENT DATE: 20171013
